FAERS Safety Report 9743303 (Version 3)
Quarter: 2015Q3

REPORT INFORMATION
  Report Type: Spontaneous
  Country: US (occurrence: US)
  Receive Date: 20131210
  Receipt Date: 20150805
  Transmission Date: 20151125
  Serious: Yes (Other)
  Sender: FDA-Public Use
  Company Number: US-GILEAD-2009-0025597

PATIENT
  Age: 49 Year
  Sex: Female
  Weight: 106.59 kg

DRUGS (10)
  1. LASIX [Concomitant]
     Active Substance: FUROSEMIDE
  2. ALDACTONE [Concomitant]
     Active Substance: SPIRONOLACTONE
  3. METHADONE [Concomitant]
     Active Substance: METHADONE HYDROCHLORIDE
  4. LEVOTHROID [Concomitant]
     Active Substance: LEVOTHYROXINE SODIUM
  5. ATENOLOL. [Concomitant]
     Active Substance: ATENOLOL
  6. PREVACID [Concomitant]
     Active Substance: LANSOPRAZOLE
  7. LETAIRIS [Suspect]
     Active Substance: AMBRISENTAN
     Indication: PULMONARY ARTERIAL HYPERTENSION
     Route: 048
     Dates: start: 20090928, end: 20091027
  8. BUSPAR [Concomitant]
     Active Substance: BUSPIRONE HYDROCHLORIDE
  9. OXYCODONE [Concomitant]
     Active Substance: OXYCODONE
  10. AMARYL [Concomitant]
     Active Substance: GLIMEPIRIDE

REACTIONS (3)
  - Rash [Recovering/Resolving]
  - Angioedema [Recovering/Resolving]
  - Drug hypersensitivity [Recovering/Resolving]

NARRATIVE: CASE EVENT DATE: 20090925
